FAERS Safety Report 15997096 (Version 1)
Quarter: 2019Q1

REPORT INFORMATION
  Report Type: Report from Study
  Country: AR (occurrence: AR)
  Receive Date: 20190222
  Receipt Date: 20190222
  Transmission Date: 20190418
  Serious: Yes (Other)
  Sender: FDA-Public Use
  Company Number: PHHY2019AR040833

PATIENT
  Sex: Female

DRUGS (4)
  1. DIOVAN D [Suspect]
     Active Substance: HYDROCHLOROTHIAZIDE\VALSARTAN
     Indication: HYPERTENSION
     Dosage: 0.5 DF (HALF OF 160 UNITS), QD
     Route: 065
     Dates: start: 2002
  2. VENORUTON [Concomitant]
     Active Substance: TROXERUTIN
     Indication: HYPERTENSION
     Dosage: 500 MG, UNK
     Route: 065
     Dates: start: 2002, end: 2013
  3. DIOVAN D [Suspect]
     Active Substance: HYDROCHLOROTHIAZIDE\VALSARTAN
     Dosage: 1 DF (ONE OF 160 UNITS), QD
     Route: 065
  4. LUCENTIS [Suspect]
     Active Substance: RANIBIZUMAB
     Indication: MACULOPATHY
     Dosage: UNK
     Route: 065
     Dates: start: 2014

REACTIONS (7)
  - Skin ulcer [Not Recovered/Not Resolved]
  - Wrong technique in product usage process [Unknown]
  - Arrhythmia [Not Recovered/Not Resolved]
  - Malaise [Unknown]
  - Eye disorder [Unknown]
  - Product prescribing error [Unknown]
  - Visual impairment [Not Recovered/Not Resolved]
